FAERS Safety Report 26101752 (Version 1)
Quarter: 2025Q4

REPORT INFORMATION
  Report Type: Spontaneous
  Country: CA (occurrence: CA)
  Receive Date: 20251128
  Receipt Date: 20251128
  Transmission Date: 20260117
  Serious: Yes (Other)
  Sender: AMGEN
  Company Number: CA-AMGEN-CANSP2025230453

PATIENT
  Age: 6 Year
  Sex: Female

DRUGS (4)
  1. RITUXIMAB [Suspect]
     Active Substance: RITUXIMAB
     Indication: Autoimmune hepatitis
     Dosage: UNK UNK, Q6MO
     Route: 065
  2. RITUXIMAB [Suspect]
     Active Substance: RITUXIMAB
     Indication: Autoimmune neutropenia
     Dosage: UNK UNK, Q4MO
     Route: 065
  3. RITUXIMAB [Suspect]
     Active Substance: RITUXIMAB
     Dosage: UNK UNK, Q6MO
     Route: 065
  4. PREDNISONE [Suspect]
     Active Substance: PREDNISONE
     Indication: Autoimmune hepatitis
     Dosage: UNK
     Route: 065

REACTIONS (4)
  - Autoimmune hepatitis [Recovered/Resolved]
  - Secondary immunodeficiency [Unknown]
  - Drug effective for unapproved indication [Unknown]
  - Off label use [Unknown]
